FAERS Safety Report 6741090-0 (Version None)
Quarter: 2010Q2

REPORT INFORMATION
  Report Type: 
  Country: None (occurrence: None)
  Receive Date: 20100526
  Receipt Date: 20100511
  Transmission Date: 20101027
  Serious: Yes (Hospitalization)
  Sender: FDA-Public Use
  Company Number: PHHO2010IT07376

PATIENT
  Sex: Male
  Weight: 74 kg

DRUGS (7)
  1. DIOVAN [Suspect]
     Indication: CARDIAC FAILURE CHRONIC
     Dosage: NO TREATMENT
     Route: 048
  2. BLINDED LCZ696 LCZ+TAB [Suspect]
     Indication: CARDIAC FAILURE CHRONIC
     Dosage: NO TREATMENT
     Route: 048
  3. BLINDED NO TREATMENT RECEIVED NOMED [Suspect]
     Indication: CARDIAC FAILURE CHRONIC
     Dosage: NO TREATMENT
     Route: 048
  4. COMPARATOR ENALAPRIL [Suspect]
     Dosage: UNK
     Dates: start: 20100327, end: 20100501
  5. RAMIPRIL [Concomitant]
     Indication: CARDIAC FAILURE CHRONIC
  6. BISOPROLOL [Concomitant]
     Indication: CARDIAC FAILURE CHRONIC
  7. FUROSEMIDE [Concomitant]
     Indication: CARDIAC FAILURE CHRONIC

REACTIONS (4)
  - DIARRHOEA [None]
  - DIZZINESS [None]
  - HAEMOGLOBIN DECREASED [None]
  - HYPOTENSION [None]
